FAERS Safety Report 5953596-2 (Version None)
Quarter: 2008Q4

REPORT INFORMATION
  Report Type: 
  Country: None (occurrence: None)
  Receive Date: 20081114
  Receipt Date: 20081112
  Transmission Date: 20090506
  Serious: Yes (Hospitalization)
  Sender: FDA-Public Use
  Company Number: A0756582A

PATIENT
  Age: 65 Year
  Sex: Female
  Weight: 95 kg

DRUGS (6)
  1. SERETIDE [Suspect]
     Indication: ASTHMA
     Route: 065
     Dates: start: 20080911
  2. CICLESONIDE [Concomitant]
     Dates: start: 20070501
  3. DAFLON [Concomitant]
     Dates: start: 20081001
  4. CRESTOR [Concomitant]
     Dates: start: 20080901
  5. PURAN T4 [Concomitant]
     Dates: start: 20030101
  6. ARADOIS [Concomitant]
     Dates: start: 20070101

REACTIONS (2)
  - PULMONARY EMBOLISM [None]
  - THROMBOSIS [None]
